FAERS Safety Report 7937763-4 (Version None)
Quarter: 2011Q4

REPORT INFORMATION
  Report Type: 
  Country: None (occurrence: None)
  Receive Date: 20111123
  Receipt Date: 20111121
  Transmission Date: 20120403
  Serious: Yes (Death)
  Sender: FDA-Public Use
  Company Number: PHFR2011GB06192

PATIENT
  Sex: Female

DRUGS (5)
  1. VALPROATE SODIUM [Concomitant]
     Route: 048
     Dates: start: 20081119
  2. PAROXETINE HCL [Concomitant]
     Dosage: 40 MG
  3. TRIMETHOPRIM [Concomitant]
     Route: 048
     Dates: start: 20110424
  4. CLOZARIL [Suspect]
     Indication: SCHIZOPHRENIA
     Dosage: 500 MG
     Route: 048
     Dates: start: 20030108
  5. HYOSCINE HYDROBROMIDE [Concomitant]
     Dosage: 150 UG
     Route: 048

REACTIONS (1)
  - DEATH [None]
